FAERS Safety Report 16656057 (Version 1)
Quarter: 2019Q3

REPORT INFORMATION
  Report Type: Report from Study
  Country: NL (occurrence: NL)
  Receive Date: 20190801
  Receipt Date: 20190801
  Transmission Date: 20191004
  Serious: Yes (Other)
  Sender: FDA-Public Use
  Company Number: NL-TOLMAR, INC.-2019NL007934

PATIENT

DRUGS (2)
  1. ELIGARD [Suspect]
     Active Substance: LEUPROLIDE ACETATE
     Dosage: 45 MG, 1X 6 MONTHS
     Route: 058
     Dates: start: 20190131
  2. ELIGARD [Suspect]
     Active Substance: LEUPROLIDE ACETATE
     Indication: PROSTATE CANCER
     Dosage: 45 MG, 1X 6 MONTHS
     Route: 058
     Dates: start: 20180802

REACTIONS (2)
  - Abdominal pain [Unknown]
  - Terminal state [Unknown]

NARRATIVE: CASE EVENT DATE: 20190729
